FAERS Safety Report 18444570 (Version 1)
Quarter: 2020Q4

REPORT INFORMATION
  Report Type: Spontaneous
  Country: US (occurrence: US)
  Receive Date: 20201030
  Receipt Date: 20201030
  Transmission Date: 20210114
  Serious: No
  Sender: FDA-Public Use
  Company Number: US-GLAXOSMITHKLINE-US2020AMR210092

PATIENT
  Sex: Female

DRUGS (1)
  1. NUCALA [Suspect]
     Active Substance: MEPOLIZUMAB
     Indication: ASTHMA
     Dosage: UNK UNK, CYC
     Route: 065
     Dates: start: 202004

REACTIONS (5)
  - Oropharyngeal discomfort [Unknown]
  - Multiple allergies [Unknown]
  - Upper respiratory tract congestion [Unknown]
  - Respiration abnormal [Unknown]
  - Product dose omission issue [Unknown]
